FAERS Safety Report 8001542-2 (Version None)
Quarter: 2011Q4

REPORT INFORMATION
  Report Type: 
  Country: None (occurrence: None)
  Receive Date: 20111219
  Receipt Date: 20111214
  Transmission Date: 20120403
  Serious: Yes (Hospitalization, Other)
  Sender: FDA-Public Use
  Company Number: GER/UKI/11/0022330

PATIENT
  Age: 72 Year
  Sex: Female
  Weight: 55 kg

DRUGS (7)
  1. LEVOTHYROXINE SODIUM [Concomitant]
  2. BENDROFLUMETHIAZIDE (BENDROFLUMETHIAZIDE) [Concomitant]
  3. CANDESARTAN CILEXETIL [Concomitant]
  4. ALENDRONATE SODIUM [Suspect]
     Indication: PROPHYLAXIS
     Dosage: 70 MG, ORAL
     Route: 048
     Dates: start: 20081201
  5. ARTHROTEC [Concomitant]
  6. SIMVASTATIN [Concomitant]
  7. AMITRIPTYLINE HCL [Concomitant]

REACTIONS (3)
  - FEMUR FRACTURE [None]
  - FALL [None]
  - TRAUMATIC FRACTURE [None]
